FAERS Safety Report 5471022-7 (Version None)
Quarter: 2007Q3

REPORT INFORMATION
  Report Type: 
  Country: None (occurrence: None)
  Receive Date: 20070928
  Receipt Date: 20070926
  Transmission Date: 20080115
  Serious: Yes (Hospitalization)
  Sender: FDA-Public Use
  Company Number: B0486940A

PATIENT
  Age: 83 Year
  Sex: Male

DRUGS (7)
  1. CEFUROXIME [Suspect]
     Route: 048
     Dates: start: 20070227, end: 20070305
  2. BIOCALYPTOL [Suspect]
     Indication: COUGH
     Route: 048
     Dates: start: 20070227, end: 20070305
  3. BIPRETERAX [Concomitant]
     Route: 065
  4. KARDEGIC [Concomitant]
     Route: 065
  5. CRESTOR [Concomitant]
     Route: 065
  6. LERCAN [Concomitant]
     Route: 065
  7. FUCIDINE [Concomitant]
     Route: 065

REACTIONS (6)
  - RASH [None]
  - RASH GENERALISED [None]
  - RASH PAPULAR [None]
  - RASH PUSTULAR [None]
  - SKIN EXFOLIATION [None]
  - TOXIC SKIN ERUPTION [None]
